FAERS Safety Report 7097345-6 (Version None)
Quarter: 2010Q4

REPORT INFORMATION
  Report Type: 
  Country: None (occurrence: None)
  Receive Date: 20101111
  Receipt Date: 20101104
  Transmission Date: 20110411
  Serious: Yes (Death, Hospitalization)
  Sender: FDA-Public Use
  Company Number: US-AMGEN-USASP2010000773

PATIENT

DRUGS (4)
  1. NPLATE [Suspect]
     Indication: IDIOPATHIC THROMBOCYTOPENIC PURPURA
     Dosage: UNK
     Dates: start: 20100125, end: 20100216
  2. NPLATE [Suspect]
     Indication: LUNG NEOPLASM MALIGNANT
     Dates: start: 20100209, end: 20100216
  3. CORTICOSTEROIDS [Concomitant]
     Dosage: UNK
     Dates: start: 20100105
  4. IMMU-G [Concomitant]
     Dosage: UNK
     Route: 042
     Dates: start: 20100108, end: 20100111

REACTIONS (2)
  - LUNG NEOPLASM MALIGNANT [None]
  - RESPIRATORY FAILURE [None]
